FAERS Safety Report 24440225 (Version 1)
Quarter: 2024Q4

REPORT INFORMATION
  Report Type: Spontaneous
  Country: US (occurrence: US)
  Receive Date: 20241016
  Receipt Date: 20241016
  Transmission Date: 20250114
  Serious: No
  Sender: AMGEN
  Company Number: US-AMGEN-USASP2024201791

PATIENT
  Age: 58 Year
  Sex: Female

DRUGS (3)
  1. PREDNISONE [Suspect]
     Active Substance: PREDNISONE
     Indication: Purpura non-thrombocytopenic
     Dosage: UNK, TAPER OVER 6 WEEKS
     Route: 048
  2. HYDROXYCHLOROQUINE [Concomitant]
     Active Substance: HYDROXYCHLOROQUINE
     Indication: Purpura non-thrombocytopenic
     Dosage: 200 MILLIGRAM, BID
     Route: 048
  3. CLOBETASOL [Concomitant]
     Active Substance: CLOBETASOL
     Indication: Purpura non-thrombocytopenic
     Dosage: UNK UNK, BID (0.05%)
     Route: 061

REACTIONS (1)
  - Purpura senile [Recovered/Resolved]
